FAERS Safety Report 5662915-6 (Version None)
Quarter: 2008Q1

REPORT INFORMATION
  Report Type: 
  Country: None (occurrence: None)
  Receive Date: 20080313
  Receipt Date: 20080303
  Transmission Date: 20080703
  Serious: Yes (Disabling)
  Sender: FDA-Public Use
  Company Number: US-MERCK-0706USA00981

PATIENT
  Age: 55 Year
  Sex: Female

DRUGS (2)
  1. FOSAMAX [Suspect]
     Indication: OSTEOPOROSIS
     Route: 048
     Dates: start: 19960729, end: 19960901
  2. PREMARIN [Concomitant]
     Route: 065
     Dates: start: 19990401

REACTIONS (10)
  - ANXIETY [None]
  - DEPRESSION [None]
  - HYPERSENSITIVITY [None]
  - MUSCULOSKELETAL DISCOMFORT [None]
  - OSTEOARTHRITIS [None]
  - PERIARTHRITIS [None]
  - RESORPTION BONE INCREASED [None]
  - ROAD TRAFFIC ACCIDENT [None]
  - SINUS DISORDER [None]
  - TEMPOROMANDIBULAR JOINT SYNDROME [None]
